FAERS Safety Report 12323514 (Version 1)
Quarter: 2016Q2

REPORT INFORMATION
  Report Type: Spontaneous
  Country: SK (occurrence: SK)
  Receive Date: 20160502
  Receipt Date: 20160502
  Transmission Date: 20160815
  Serious: Yes (Death, Hospitalization)
  Sender: FDA-Public Use
  Company Number: PHHY2016SK059437

PATIENT
  Age: 74 Year
  Sex: Female

DRUGS (3)
  1. PAZOPANIB [Suspect]
     Active Substance: PAZOPANIB
     Indication: PRODUCT USED FOR UNKNOWN INDICATION
     Dosage: 200 MG, UNK
     Route: 065
     Dates: start: 201203
  2. PAZOPANIB [Suspect]
     Active Substance: PAZOPANIB
     Dosage: 400 MG, UNK
     Route: 065
  3. PAZOPANIB [Suspect]
     Active Substance: PAZOPANIB
     Dosage: 600 MG, UNK
     Route: 065

REACTIONS (6)
  - Pneumonia [Fatal]
  - Dyspepsia [Recovered/Resolved]
  - Flatulence [Recovered/Resolved]
  - Gastrointestinal toxicity [Recovered/Resolved]
  - Nausea [Recovered/Resolved]
  - Diarrhoea [Recovered/Resolved]

NARRATIVE: CASE EVENT DATE: 201203
